FAERS Safety Report 13070190 (Version 1)
Quarter: 2016Q4

REPORT INFORMATION
  Report Type: Spontaneous
  Country: TR (occurrence: TR)
  Receive Date: 20161228
  Receipt Date: 20161228
  Transmission Date: 20170207
  Serious: Yes (Other)
  Sender: FDA-Public Use
  Company Number: ALCN2016TR009119

PATIENT
  Age: 50 Year
  Sex: Female

DRUGS (18)
  1. TRIAMCINOLONE ACETATE [Suspect]
     Active Substance: TRIAMCINOLONE ACETONIDE
     Indication: POSTOPERATIVE CARE
     Dosage: 4 MG, ONCE/SINGLE
     Route: 031
  2. OFLOXACIN. [Concomitant]
     Active Substance: OFLOXACIN
     Dosage: 1 GTT, Q2H
     Route: 047
  3. VANCOMYCIN [Concomitant]
     Active Substance: VANCOMYCIN
     Indication: POSTOPERATIVE CARE
     Dosage: 1 MG, ONCE/SINGLE
     Route: 031
  4. PREDNISOLONE ACETATE. [Suspect]
     Active Substance: PREDNISOLONE ACETATE
     Indication: PRODUCT USED FOR UNKNOWN INDICATION
     Dosage: UNK
     Route: 047
  5. OFLOXACIN. [Concomitant]
     Active Substance: OFLOXACIN
     Indication: POSTOPERATIVE CARE
     Dosage: 1 DF, QID
     Route: 047
  6. AMIKACIN [Concomitant]
     Active Substance: AMIKACIN
     Dosage: 0.4 MG, ONCE/SINGLE
     Route: 031
  7. VANCOMYCIN [Concomitant]
     Active Substance: VANCOMYCIN
     Dosage: 1 MG, ONCE/SINGLE
     Route: 031
  8. DEXAMETHASONE. [Suspect]
     Active Substance: DEXAMETHASONE
     Indication: POSTOPERATIVE CARE
     Dosage: 1 DF, QID
     Route: 047
  9. DEXAMETHASONE. [Suspect]
     Active Substance: DEXAMETHASONE
     Dosage: 1 GTT, Q2H
     Route: 047
  10. OFLOXACIN. [Concomitant]
     Active Substance: OFLOXACIN
     Dosage: UNK
     Route: 047
  11. PREDNISOLONE. [Suspect]
     Active Substance: PREDNISOLONE
     Indication: PRODUCT USED FOR UNKNOWN INDICATION
     Dosage: 0.5 MG/KG, QD
     Route: 048
  12. CEFUROXIME. [Concomitant]
     Active Substance: CEFUROXIME
     Indication: POSTOPERATIVE CARE
     Dosage: 1.0 MG/0.1 ML ONCE/SINGLE
     Route: 065
  13. VANCOMYCIN [Concomitant]
     Active Substance: VANCOMYCIN
     Dosage: 25 MG/ML, Q2H
     Route: 065
  14. AMIKACIN [Concomitant]
     Active Substance: AMIKACIN
     Indication: POSTOPERATIVE CARE
     Dosage: 0.4 MG, ONCE/SINGLE
     Route: 031
  15. AMIKACIN [Concomitant]
     Active Substance: AMIKACIN
     Dosage: 0.4 MG, ONCE/SINGLE
     Route: 031
  16. CYCLOPENTOLATE. [Concomitant]
     Active Substance: CYCLOPENTOLATE
     Indication: PRODUCT USED FOR UNKNOWN INDICATION
     Dosage: 1 DF, BID
     Route: 047
  17. TROPICAMIDE. [Concomitant]
     Active Substance: TROPICAMIDE
     Indication: PRODUCT USED FOR UNKNOWN INDICATION
     Dosage: 1 DF, BID
     Route: 047
  18. VANCOMYCIN [Concomitant]
     Active Substance: VANCOMYCIN
     Dosage: 1 MG, ONCE/SINGLE
     Route: 031

REACTIONS (12)
  - Visual acuity reduced [Recovering/Resolving]
  - Retinal infiltrates [Recovered/Resolved]
  - Mycotic endophthalmitis [Recovered/Resolved]
  - Ciliary hyperaemia [Unknown]
  - Anterior chamber inflammation [Recovered/Resolved]
  - Hypopyon [Unknown]
  - Pupillary disorder [Unknown]
  - Vitreous haze [Recovered/Resolved]
  - Eye pain [Unknown]
  - Corneal oedema [Unknown]
  - Iridocyclitis [Unknown]
  - Ocular discomfort [Unknown]
